FAERS Safety Report 7156290-8 (Version None)
Quarter: 2010Q4

REPORT INFORMATION
  Report Type: 
  Country: None (occurrence: None)
  Receive Date: 20101214
  Receipt Date: 20101208
  Transmission Date: 20110411
  Serious: Yes (Death, Hospitalization)
  Sender: FDA-Public Use
  Company Number: BR-GENZYME-CERZ-1001696

PATIENT

DRUGS (2)
  1. CEREZYME [Suspect]
     Indication: GAUCHER'S DISEASE
     Dosage: UNK
     Route: 042
     Dates: start: 20070815, end: 20100701
  2. TALIGLUCERASE ALFA [Suspect]
     Indication: GAUCHER'S DISEASE
     Dosage: UNK
     Route: 042
     Dates: start: 20101001

REACTIONS (3)
  - DEATH [None]
  - LUNG DISORDER [None]
  - TUBERCULOSIS [None]
